FAERS Safety Report 7171319-9 (Version None)
Quarter: 2010Q4

REPORT INFORMATION
  Report Type: 
  Country: None (occurrence: None)
  Receive Date: 20101217
  Receipt Date: 20101208
  Transmission Date: 20110411
  Serious: Yes (Other)
  Sender: FDA-Public Use
  Company Number: SA-ASTRAZENECA-2010SE57917

PATIENT
  Age: 30 Year
  Sex: Male

DRUGS (1)
  1. ESOMEPRAZOLE [Suspect]
     Indication: GASTRITIS
     Route: 048

REACTIONS (2)
  - GASTRIC POLYPS [None]
  - HIATUS HERNIA [None]
